FAERS Safety Report 22017385 (Version 1)
Quarter: 2023Q1

REPORT INFORMATION
  Report Type: Spontaneous
  Country: RU (occurrence: RU)
  Receive Date: 20230221
  Receipt Date: 20230221
  Transmission Date: 20230418
  Serious: Yes (Hospitalization, Other)
  Sender: FDA-Public Use
  Company Number: RU-TAKEDA-2023TUS017790

PATIENT
  Age: 36 Year
  Sex: Female

DRUGS (1)
  1. TAKHZYRO [Suspect]
     Active Substance: LANADELUMAB-FLYO
     Indication: Hereditary angioedema with C1 esterase inhibitor deficiency
     Dosage: 300 MILLIGRAM
     Route: 058
     Dates: start: 20210817

REACTIONS (4)
  - Abortion spontaneous [Recovered/Resolved with Sequelae]
  - Stress [Recovered/Resolved with Sequelae]
  - Fear [Recovered/Resolved with Sequelae]
  - Pregnancy [Unknown]

NARRATIVE: CASE EVENT DATE: 20230119
